FAERS Safety Report 5753891-6 (Version None)
Quarter: 2008Q2

REPORT INFORMATION
  Report Type: 
  Country: None (occurrence: None)
  Receive Date: 20080530
  Receipt Date: 20080527
  Transmission Date: 20081010
  Serious: Yes (Life-Threatening, Hospitalization)
  Sender: FDA-Public Use
  Company Number: B0516747A

PATIENT
  Age: 91 Year
  Sex: Female
  Weight: 48 kg

DRUGS (8)
  1. ARIXTRA [Suspect]
     Indication: THROMBOSIS PROPHYLAXIS
     Dosage: 2.5MG PER DAY
     Route: 058
     Dates: start: 20080219, end: 20080320
  2. ARIXTRA [Suspect]
     Indication: PHLEBITIS
     Dosage: 7.5MG PER DAY
     Route: 058
     Dates: start: 20080320, end: 20080326
  3. PREVISCAN [Suspect]
     Dosage: 10MG PER DAY
     Route: 048
     Dates: start: 20080322
  4. COAPROVEL [Concomitant]
     Dosage: 300MG PER DAY
     Route: 065
     Dates: start: 20080219
  5. ASPIRIN [Concomitant]
     Dosage: 75MG PER DAY
     Route: 065
     Dates: start: 20080219, end: 20080324
  6. KALEORID LP [Concomitant]
     Dosage: 600MG PER DAY
     Route: 065
     Dates: start: 20080219, end: 20080418
  7. LASILIX [Concomitant]
     Dosage: 40MG PER DAY
     Route: 065
     Dates: start: 20080219
  8. NITRODERM [Concomitant]
     Dosage: 5MG PER DAY
     Route: 062
     Dates: start: 20080219

REACTIONS (9)
  - ANAEMIA [None]
  - DRUG INEFFECTIVE [None]
  - GENERAL PHYSICAL HEALTH DETERIORATION [None]
  - HAEMATOMA [None]
  - INCISION SITE HAEMORRHAGE [None]
  - PALLOR [None]
  - PUNCTURE SITE ABSCESS [None]
  - PYREXIA [None]
  - THROMBOPHLEBITIS [None]
